FAERS Safety Report 13709383 (Version 2)
Quarter: 2017Q3

REPORT INFORMATION
  Report Type: Report from Study
  Country: None (occurrence: DE)
  Receive Date: 20170703
  Receipt Date: 20170705
  Transmission Date: 20171127
  Serious: Yes (Hospitalization)
  Sender: FDA-Public Use
  Company Number: DE-ABBVIE-17K-062-2025738-00

PATIENT
  Age: 49 Year
  Sex: Male

DRUGS (2)
  1. CORTISONE [Concomitant]
     Active Substance: CORTISONE\HYDROCORTISONE
     Indication: PRODUCT USED FOR UNKNOWN INDICATION
  2. HUMIRA [Suspect]
     Active Substance: ADALIMUMAB
     Indication: COLITIS ULCERATIVE
     Route: 058
     Dates: start: 20170419, end: 20170627

REACTIONS (4)
  - Clostridium difficile colitis [Recovering/Resolving]
  - General physical health deterioration [Recovering/Resolving]
  - Diarrhoea haemorrhagic [Recovering/Resolving]
  - Gastrointestinal bacterial infection [Recovering/Resolving]

NARRATIVE: CASE EVENT DATE: 201705
